FAERS Safety Report 15689898 (Version 1)
Quarter: 2018Q4

REPORT INFORMATION
  Report Type: Spontaneous
  Country: US (occurrence: US)
  Receive Date: 20181205
  Receipt Date: 20181205
  Transmission Date: 20190205
  Serious: Yes (Hospitalization)
  Sender: FDA-Public Use
  Company Number: PHEH2018US050751

PATIENT
  Sex: Female
  Weight: 87.75 kg

DRUGS (4)
  1. LOSARTIN [Concomitant]
     Active Substance: LOSARTAN
     Indication: PRODUCT USED FOR UNKNOWN INDICATION
     Dosage: UNK
     Route: 065
  2. KEPPRA [Concomitant]
     Active Substance: LEVETIRACETAM
     Indication: PRODUCT USED FOR UNKNOWN INDICATION
     Dosage: UNK
     Route: 065
  3. ADVIL [Concomitant]
     Active Substance: IBUPROFEN
     Indication: PRODUCT USED FOR UNKNOWN INDICATION
     Dosage: UNK
     Route: 065
  4. COSENTYX [Suspect]
     Active Substance: SECUKINUMAB
     Indication: PSORIATIC ARTHROPATHY
     Dosage: UNK
     Route: 065
     Dates: start: 20170601, end: 20180608

REACTIONS (7)
  - Crohn^s disease [Unknown]
  - Malaise [Unknown]
  - White blood cell count decreased [Unknown]
  - Abscess intestinal [Unknown]
  - Decreased appetite [Unknown]
  - Abdominal distension [Unknown]
  - Pyrexia [Unknown]

NARRATIVE: CASE EVENT DATE: 20180625
